FAERS Safety Report 9363692 (Version 1)
Quarter: 2013Q2

REPORT INFORMATION
  Report Type: Spontaneous
  Country: GB (occurrence: GB)
  Receive Date: 20130624
  Receipt Date: 20130624
  Transmission Date: 20140414
  Serious: Yes (Other)
  Sender: FDA-Public Use
  Company Number: GB-UCBSA-089513

PATIENT
  Age: 76 Year
  Sex: Female

DRUGS (9)
  1. ROTIGOTINE [Suspect]
     Indication: PARKINSON^S DISEASE
  2. STALEVO [Suspect]
     Indication: PARKINSON^S DISEASE
     Dosage: 100/25/200 X 5
  3. FUROSEMIDE [Concomitant]
  4. SINEMET CR [Concomitant]
     Indication: PARKINSON^S DISEASE
     Dosage: 25/100 X 1
  5. RASAGILINE [Concomitant]
     Indication: PARKINSON^S DISEASE
     Dosage: DOSE : 1 MG
  6. METFORMIN [Concomitant]
  7. RAMIPRIL [Concomitant]
  8. ATORVASTATIN [Concomitant]
  9. CO-CODAMOL [Concomitant]
     Dosage: AS REQUIRED

REACTIONS (3)
  - Femoral neck fracture [Unknown]
  - Fall [Unknown]
  - Agitation [Unknown]
